FAERS Safety Report 23302806 (Version 1)
Quarter: 2023Q4

REPORT INFORMATION
  Report Type: Spontaneous
  Country: US (occurrence: US)
  Receive Date: 20231215
  Receipt Date: 20231215
  Transmission Date: 20240110
  Serious: Yes (Hospitalization, Other)
  Sender: FDA-Public Use
  Company Number: US-TORRENT-00013035

PATIENT
  Age: 15 Year
  Sex: Male

DRUGS (1)
  1. ARIPIPRAZOLE [Suspect]
     Active Substance: ARIPIPRAZOLE
     Indication: Product used for unknown indication
     Dosage: UNKNOWN
     Route: 048

REACTIONS (6)
  - Suicidal ideation [Recovering/Resolving]
  - Hallucination, auditory [Recovering/Resolving]
  - Condition aggravated [Recovering/Resolving]
  - Psychiatric decompensation [Recovering/Resolving]
  - Delusion [Recovering/Resolving]
  - Treatment noncompliance [Unknown]
